FAERS Safety Report 5563253-2 (Version None)
Quarter: 2007Q4

REPORT INFORMATION
  Report Type: 
  Country: None (occurrence: None)
  Receive Date: 20071217
  Receipt Date: 20071127
  Transmission Date: 20080405
  Serious: Yes (Hospitalization)
  Sender: FDA-Public Use
  Company Number: US-ROCHE-496509

PATIENT
  Age: 63 Year
  Sex: Male

DRUGS (26)
  1. CELLCEPT [Suspect]
     Indication: PROPHYLAXIS AGAINST TRANSPLANT REJECTION
     Route: 065
     Dates: start: 20060227
  2. CELLCEPT [Suspect]
     Route: 065
  3. COREG [Suspect]
     Dosage: DRUG REPORTED AS CARVEDILOL TABLET ^PHARMACY BOT^
     Route: 048
     Dates: start: 20060901
  4. COREG [Suspect]
     Dosage: DOSAGE WAS INCREASED
     Route: 048
  5. COREG [Suspect]
     Route: 048
     Dates: start: 20070101
  6. COREG [Suspect]
     Dosage: DOSE WAS REDUCED 3-4 WEEKS LATER.
     Route: 048
  7. COREG CR [Suspect]
     Route: 048
     Dates: start: 20070101, end: 20070101
  8. RAPAMUNE [Suspect]
     Indication: PROPHYLAXIS AGAINST TRANSPLANT REJECTION
     Route: 065
     Dates: start: 20060227, end: 20070907
  9. LANTUS [Concomitant]
     Dosage: DRUG REPORTED AS INTERMEDIATE/LONG-ACTING INSULIN.
  10. GLIPIZIDE [Concomitant]
  11. NOVOLOG [Concomitant]
  12. OMEPRAZOLE [Concomitant]
  13. LASIX [Concomitant]
     Dates: end: 20070101
  14. LASIX [Concomitant]
  15. LISINOPRIL [Concomitant]
     Dates: end: 20070101
  16. LISINOPRIL [Concomitant]
  17. SIMVASTATIN [Concomitant]
  18. DIGOXIN [Concomitant]
     Dates: end: 20070101
  19. COUMADIN [Concomitant]
  20. SPIRONOLACTONE [Concomitant]
  21. 1 CONCOMITANT DRUG [Concomitant]
     Dosage: DRUG REPORTED AS EYE MEDICATION UNSPECIFIED
  22. FOLIC ACID [Concomitant]
  23. ASPIRIN [Concomitant]
  24. CALCIUM SALTS NOS [Concomitant]
  25. MULTI-VITAMIN [Concomitant]
  26. DIGESTIVE ENZYME [Concomitant]

REACTIONS (11)
  - ASTHENIA [None]
  - BLOOD GLUCOSE FLUCTUATION [None]
  - BLOOD PRESSURE DECREASED [None]
  - BLOOD PRESSURE INCREASED [None]
  - CEREBROVASCULAR ACCIDENT [None]
  - DEHYDRATION [None]
  - DIABETES MELLITUS INADEQUATE CONTROL [None]
  - DYSPNOEA [None]
  - HYPERSOMNIA [None]
  - INTRACARDIAC THROMBUS [None]
  - OVERDOSE [None]
